FAERS Safety Report 5080770-2 (Version None)
Quarter: 2006Q3

REPORT INFORMATION
  Report Type: 
  Country: None (occurrence: None)
  Receive Date: 20060809
  Receipt Date: 20060724
  Transmission Date: 20061208
  Serious: Yes (Hospitalization, Other)
  Sender: FDA-Public Use
  Company Number: 2006AL001954

PATIENT
  Age: 32 Year
  Sex: Female

DRUGS (2)
  1. NIFEDIPINE [Suspect]
     Dates: start: 20060205
  2. LAMICTAL [Concomitant]

REACTIONS (4)
  - DRUG EXPOSURE DURING PREGNANCY [None]
  - GRAND MAL CONVULSION [None]
  - PREMATURE BABY [None]
  - TWIN PREGNANCY [None]
